FAERS Safety Report 5296879-4 (Version None)
Quarter: 2007Q2

REPORT INFORMATION
  Report Type: 
  Country: None (occurrence: None)
  Receive Date: 20070413
  Receipt Date: 20070406
  Transmission Date: 20071010
  Serious: Yes (Other)
  Sender: FDA-Public Use
  Company Number: US-PFIZER INC-2007028624

PATIENT
  Age: 45 Year
  Sex: Female

DRUGS (1)
  1. CHANTIX [Suspect]

REACTIONS (3)
  - CONFUSIONAL STATE [None]
  - FEELING DRUNK [None]
  - MENTAL IMPAIRMENT [None]
